FAERS Safety Report 7948797-8 (Version None)
Quarter: 2011Q4

REPORT INFORMATION
  Report Type: 
  Country: None (occurrence: None)
  Receive Date: 20111123
  Receipt Date: 20111115
  Transmission Date: 20120403
  Serious: Yes (Hospitalization)
  Sender: FDA-Public Use
  Company Number: 2011P1009881

PATIENT
  Age: 62 Year
  Sex: Male
  Weight: 91.173 kg

DRUGS (18)
  1. SIMVASTATIN [Concomitant]
  2. ASPIRIN [Concomitant]
  3. ARICEPT [Concomitant]
  4. OXYGEN [Concomitant]
  5. LASIX [Concomitant]
  6. POTASSIUM ACETATE [Concomitant]
  7. LORAZEPAM [Concomitant]
  8. HYDROCODONE BITARTRATE + ACETAMINOPHEN [Concomitant]
  9. TRAZODONE HCL [Concomitant]
  10. ALLOPURINOL [Concomitant]
  11. CHLORIDE [Concomitant]
  12. FOLIC ACID [Concomitant]
  13. VITAMIN B-12 [Concomitant]
  14. ZOLPIDEM [Concomitant]
  15. PROVENTIL [Concomitant]
  16. WARFARIN SODIUM [Suspect]
     Indication: THROMBOSIS
     Dosage: 2.5 MG; MON, TUES;    5 MG; WEDS, THURS, FRI, SAT AND SUN
     Dates: start: 20020101
  17. WARFARIN SODIUM [Suspect]
     Indication: THROMBOSIS
     Dosage: 2.5 MG; MON, TUES;    5 MG; WEDS, THURS, FRI, SAT AND SUN
     Dates: start: 20020101
  18. NEXIUM [Concomitant]

REACTIONS (9)
  - THROMBOSIS [None]
  - GASTROINTESTINAL STOMA COMPLICATION [None]
  - SKIN EXFOLIATION [None]
  - HERNIA REPAIR [None]
  - COLONIC POLYP [None]
  - FLUID RETENTION [None]
  - PRODUCT SUBSTITUTION ISSUE [None]
  - DRY SKIN [None]
  - DRUG INEFFECTIVE [None]
